FAERS Safety Report 4662509-5 (Version None)
Quarter: 2005Q2

REPORT INFORMATION
  Report Type: 
  Country: None (occurrence: None)
  Receive Date: 20050513
  Receipt Date: 20050513
  Transmission Date: 20051028
  Serious: No
  Sender: FDA-Public Use
  Company Number: None

PATIENT
  Sex: Male
  Weight: 143 kg

DRUGS (1)
  1. ADALAT CC [Suspect]
     Indication: HYPERTENSION
     Dosage: 60MG  QD   ORAL
     Route: 048
     Dates: start: 20050202, end: 20050310

REACTIONS (3)
  - FEELING HOT [None]
  - HYPOAESTHESIA [None]
  - PALPITATIONS [None]
